FAERS Safety Report 22001217 (Version 1)
Quarter: 2023Q1

REPORT INFORMATION
  Report Type: Spontaneous
  Country: TH (occurrence: TH)
  Receive Date: 20230216
  Receipt Date: 20230216
  Transmission Date: 20230417
  Serious: Yes (Death, Other)
  Sender: FDA-Public Use
  Company Number: TH-009507513-2302THA004005

PATIENT
  Age: 54 Year
  Sex: Male

DRUGS (2)
  1. ZERBAXA [Suspect]
     Active Substance: CEFTOLOZANE SULFATE\TAZOBACTAM SODIUM
     Indication: Sepsis
     Dosage: 750MG LD
     Route: 042
  2. ZERBAXA [Suspect]
     Active Substance: CEFTOLOZANE SULFATE\TAZOBACTAM SODIUM
     Dosage: ZERBAXA 1.5G Q8H IV FOR 7 /150 MG Q8H
     Route: 042

REACTIONS (2)
  - Death [Fatal]
  - Product temperature excursion issue [Unknown]

NARRATIVE: CASE EVENT DATE: 20230201
